FAERS Safety Report 16213078 (Version 5)
Quarter: 2019Q3

REPORT INFORMATION
  Report Type: Report from Study
  Country: US (occurrence: US)
  Receive Date: 20190418
  Receipt Date: 20190709
  Transmission Date: 20191004
  Serious: Yes (Other)
  Sender: FDA-Public Use
  Company Number: US-PFIZER INC-2019092933

PATIENT
  Age: 67 Year
  Sex: Female

DRUGS (7)
  1. IBRANCE [Suspect]
     Active Substance: PALBOCICLIB
     Indication: BREAST CANCER METASTATIC
     Dosage: 125 MG, CYCLIC (DAILY, 21 DAYS ON AND 7 DAYS OFF)
     Route: 048
     Dates: start: 20190205, end: 2019
  2. IBRANCE [Suspect]
     Active Substance: PALBOCICLIB
     Dosage: 75 MG, CYCLIC (ONE CAPSULE DAILY 21 DAYS OF A 28 DAY CYCLE)
     Route: 048
     Dates: start: 20190502, end: 20190530
  3. ANASTROZOLE. [Concomitant]
     Active Substance: ANASTROZOLE
     Indication: BREAST CANCER FEMALE
     Dosage: 1 MG, DAILY
     Dates: start: 201901
  4. IBRANCE [Suspect]
     Active Substance: PALBOCICLIB
     Dosage: 100 MG, CYCLIC (ONCE DAILY)
     Route: 048
     Dates: start: 20190326, end: 2019
  5. IBRANCE [Suspect]
     Active Substance: PALBOCICLIB
     Dosage: 75 MG, 1X/DAY
     Route: 048
     Dates: start: 20190502, end: 20190530
  6. HYDROXYCHLOROQUINE [Concomitant]
     Active Substance: HYDROXYCHLOROQUINE
     Indication: SJOGREN^S SYNDROME
     Dosage: 200 MG, 2X/DAY
     Dates: start: 201704
  7. DULOXETINE. [Concomitant]
     Active Substance: DULOXETINE
     Dosage: 60 MG, DAILY

REACTIONS (8)
  - Neutropenia [Recovered/Resolved]
  - Fatigue [Recovered/Resolved]
  - Lethargy [Unknown]
  - Dry mouth [Recovered/Resolved]
  - Dry eye [Recovered/Resolved]
  - Hypoaesthesia [Unknown]
  - Leukopenia [Not Recovered/Not Resolved]
  - Neuropathy peripheral [Not Recovered/Not Resolved]

NARRATIVE: CASE EVENT DATE: 2019
